FAERS Safety Report 7049276-5 (Version None)
Quarter: 2010Q4

REPORT INFORMATION
  Report Type: 
  Country: None (occurrence: None)
  Receive Date: 20101018
  Receipt Date: 20101007
  Transmission Date: 20110411
  Serious: No
  Sender: FDA-Public Use
  Company Number: US-PFIZER INC-2006023220

PATIENT
  Sex: Male
  Weight: 99.32 kg

DRUGS (17)
  1. VIAGRA [Suspect]
     Indication: ERECTILE DYSFUNCTION
     Dosage: UNK, AS NEEDED
     Route: 048
  2. VIAGRA [Suspect]
     Dosage: 100 MG, UNK
     Route: 048
     Dates: start: 20080101
  3. LORTAB [Concomitant]
     Dosage: UNK
     Route: 048
  4. FLEXERIL [Concomitant]
     Dosage: UNK
     Route: 048
  5. DETROL [Concomitant]
     Dosage: UNK
     Route: 048
  6. LIDODERM [Concomitant]
     Dosage: UNK
     Route: 061
  7. FLONASE [Concomitant]
     Dosage: UNK
     Route: 045
  8. PROPRANOLOL [Concomitant]
     Indication: HYPERTENSION
     Dosage: 150 MG, DAILY
     Route: 048
  9. LISINOPRIL [Concomitant]
     Indication: HYPERTENSION
     Dosage: 7 MG, DAILY
     Route: 048
  10. TYLOX [Concomitant]
     Indication: PAIN
     Dosage: 80/5 MG, 2 OR 3 THREE TIMES DAILY
     Route: 048
     Dates: start: 20060101
  11. VICODIN [Concomitant]
     Indication: PAIN
     Dosage: UNK
     Route: 048
  12. LYRICA [Concomitant]
     Indication: FIBROMYALGIA
     Dosage: 75 MG, DAILY
     Route: 048
  13. ZOLOFT [Concomitant]
     Dosage: 25 MG, DAILY
     Route: 048
  14. VITAMIN E [Concomitant]
     Dosage: UNK
     Route: 048
  15. ASCORBIC ACID [Concomitant]
     Dosage: UNK
     Route: 048
  16. FISH OIL [Concomitant]
     Dosage: UNK
     Route: 048
  17. VITAMIN D [Concomitant]
     Dosage: UNK
     Route: 048

REACTIONS (3)
  - DRUG EFFECT DECREASED [None]
  - DRUG INEFFECTIVE [None]
  - HEADACHE [None]
